FAERS Safety Report 24934507 (Version 1)
Quarter: 2025Q1

REPORT INFORMATION
  Report Type: Spontaneous
  Country: GB (occurrence: GB)
  Receive Date: 20250206
  Receipt Date: 20250206
  Transmission Date: 20250408
  Serious: Yes (Death, Other)
  Sender: EXELIXIS
  Company Number: GB-IPSEN Group, Research and Development-2024-12398

PATIENT
  Age: 21 Year
  Sex: Male

DRUGS (1)
  1. CABOMETYX [Suspect]
     Active Substance: CABOZANTINIB S-MALATE
     Indication: Poorly differentiated thyroid carcinoma
     Route: 065
     Dates: start: 20230717

REACTIONS (1)
  - Malignant neoplasm progression [Fatal]
